FAERS Safety Report 24236693 (Version 1)
Quarter: 2024Q3

REPORT INFORMATION
  Report Type: Spontaneous
  Country: US (occurrence: US)
  Receive Date: 20240822
  Receipt Date: 20240822
  Transmission Date: 20241017
  Serious: No
  Sender: BRISTOL MYERS SQUIBB
  Company Number: US-BRISTOL-MYERS SQUIBB COMPANY-2024-132803

PATIENT

DRUGS (2)
  1. OPDIVO [Suspect]
     Active Substance: NIVOLUMAB
     Indication: Product used for unknown indication
     Dosage: STRENGTH AND PRESENTATION OF THE AE : 120 MG (1VLX12ML)
  2. OPDIVO [Suspect]
     Active Substance: NIVOLUMAB
     Dosage: STRENGTH AND PRESENTATION OF THE AE: 240MG (1VL)

REACTIONS (1)
  - Adverse event [Unknown]
